FAERS Safety Report 9275269 (Version 2)
Quarter: 2013Q2

REPORT INFORMATION
  Report Type: Spontaneous
  Country: US (occurrence: US)
  Receive Date: 20130507
  Receipt Date: 20130520
  Transmission Date: 20140414
  Serious: Yes (Hospitalization, Other)
  Sender: FDA-Public Use
  Company Number: US-PFIZER INC-2013136277

PATIENT
  Age: 70 Year
  Sex: Female
  Weight: 52.2 kg

DRUGS (5)
  1. LEVOXYL [Suspect]
     Indication: HYPOTHYROIDISM
     Dosage: 62.5 UG (HALF TABLET OF 125UG), 1X/DAY
     Route: 048
     Dates: start: 2003
  2. NORVASC [Suspect]
     Indication: HYPERTENSION
     Dosage: HALF TABLET OF 10 MG, 2X/DAY (TWO TIMES A DAY)
     Route: 048
  3. NORVASC [Suspect]
     Indication: CARDIAC DISORDER
  4. PROTONIX [Concomitant]
     Indication: ABDOMINAL DISCOMFORT
     Dosage: 20 MG, 1X/DAY (DAILY)
  5. PROTONIX [Concomitant]
     Indication: ULCER HAEMORRHAGE

REACTIONS (3)
  - Cardiac murmur [Unknown]
  - Aortic stenosis [Unknown]
  - Blood pressure inadequately controlled [Unknown]
